FAERS Safety Report 20304344 (Version 1)
Quarter: 2022Q1

REPORT INFORMATION
  Report Type: Spontaneous
  Country: US (occurrence: US)
  Receive Date: 20220106
  Receipt Date: 20220106
  Transmission Date: 20220423
  Serious: Yes (Other)
  Sender: FDA-Public Use
  Company Number: US-drreddys-LIT/USA/22/0145612

PATIENT
  Age: 57 Year
  Sex: Male

DRUGS (4)
  1. PREGABALIN [Suspect]
     Active Substance: PREGABALIN
     Indication: Neuroma
  2. GABAPENTIN [Suspect]
     Active Substance: GABAPENTIN
     Indication: Neuroma
  3. AMITRIPTYLINE [Suspect]
     Active Substance: AMITRIPTYLINE
     Indication: Neuroma
  4. DULOXETINE [Suspect]
     Active Substance: DULOXETINE
     Indication: Neuroma

REACTIONS (1)
  - Treatment failure [Unknown]
